FAERS Safety Report 24069424 (Version 3)
Quarter: 2024Q4

REPORT INFORMATION
  Report Type: Report from Study
  Country: US (occurrence: US)
  Receive Date: 20240710
  Receipt Date: 20241010
  Transmission Date: 20250114
  Serious: No
  Sender: ALEXION PHARMACEUTICALS
  Company Number: US-AstraZeneca-CH-00659449A

PATIENT

DRUGS (4)
  1. STRENSIQ [Suspect]
     Active Substance: ASFOTASE ALFA
     Indication: Hypophosphatasia
     Dosage: 5 MILLILITER
     Route: 065
  2. STRENSIQ [Suspect]
     Active Substance: ASFOTASE ALFA
     Dosage: 5 MILLILITER
  3. STRENSIQ [Suspect]
     Active Substance: ASFOTASE ALFA
     Dosage: 5 MILLILITER
     Route: 065
  4. STRENSIQ [Suspect]
     Active Substance: ASFOTASE ALFA
     Dosage: 5 MILLILITER

REACTIONS (9)
  - Pain [Unknown]
  - Feeling abnormal [Unknown]
  - Vitamin B6 decreased [Unknown]
  - Rash [Unknown]
  - Oedema peripheral [Unknown]
  - Pain in extremity [Unknown]
  - Joint range of motion decreased [Unknown]
  - Weight decreased [Unknown]
  - Musculoskeletal stiffness [Unknown]
